FAERS Safety Report 15996635 (Version 1)
Quarter: 2019Q1

REPORT INFORMATION
  Report Type: Spontaneous
  Country: US (occurrence: US)
  Receive Date: 20190222
  Receipt Date: 20190222
  Transmission Date: 20190418
  Serious: Yes (Hospitalization)
  Sender: FDA-Public Use
  Company Number: None

PATIENT
  Age: 9 Year
  Sex: Female
  Weight: 36.9 kg

DRUGS (3)
  1. MULTIVITAMIN GUMMY BEAR [Concomitant]
  2. ZOOBY (SODIUM FLUORIDE) [Suspect]
     Active Substance: SODIUM FLUORIDE
     Indication: DENTAL FLUORIDE THERAPY
     Dosage: ?          QUANTITY:1 APPLICATION;OTHER FREQUENCY:ONE TIME TREATMENT;OTHER ROUTE:APPLIED TO TEETH?
     Route: 061
  3. ALBUTEROL. [Concomitant]
     Active Substance: ALBUTEROL

REACTIONS (4)
  - Dyspnoea [None]
  - Vomiting [None]
  - Salivary hypersecretion [None]
  - Cyanosis [None]

NARRATIVE: CASE EVENT DATE: 20190130
